FAERS Safety Report 14108378 (Version 1)
Quarter: 2017Q4

REPORT INFORMATION
  Report Type: Spontaneous
  Country: JP (occurrence: JP)
  Receive Date: 20171019
  Receipt Date: 20171019
  Transmission Date: 20180321
  Serious: Yes (Hospitalization)
  Sender: FDA-Public Use
  Company Number: JP-PFIZER INC-2017448736

PATIENT

DRUGS (1)
  1. RHEUMATREX [Suspect]
     Active Substance: METHOTREXATE SODIUM
     Dosage: UNK
     Route: 048

REACTIONS (4)
  - Nausea [Unknown]
  - Asthenia [Unknown]
  - Accidental overdose [Unknown]
  - Depressed level of consciousness [Unknown]
